FAERS Safety Report 5309346-6 (Version None)
Quarter: 2007Q2

REPORT INFORMATION
  Report Type: 
  Country: None (occurrence: None)
  Receive Date: 20070427
  Receipt Date: 20070413
  Transmission Date: 20071010
  Serious: Yes (Other)
  Sender: FDA-Public Use
  Company Number: PHBS2007SE06694

PATIENT
  Age: 32 Year
  Sex: Female

DRUGS (1)
  1. VOLTAREN [Suspect]
     Indication: TORTICOLLIS
     Route: 061

REACTIONS (4)
  - BLISTER [None]
  - HYPERSENSITIVITY [None]
  - OBSTRUCTIVE AIRWAYS DISORDER [None]
  - SWOLLEN TONGUE [None]
